FAERS Safety Report 9041242 (Version 1)
Quarter: 2013Q1

REPORT INFORMATION
  Report Type: Report from Study
  Country: US (occurrence: US)
  Receive Date: 20130129
  Receipt Date: 20130129
  Transmission Date: 20140127
  Serious: No
  Sender: FDA-Public Use
  Company Number: US-ABBOTT-12P-163-0899912-00

PATIENT
  Age: 63 Year
  Sex: Female

DRUGS (5)
  1. HUMIRA 40 MG/0.8 ML PEN [Suspect]
     Indication: RHEUMATOID ARTHRITIS
  2. SERTRALINE [Concomitant]
     Indication: DEPRESSION
     Dosage: DAILY
  3. CLONAZEPAM [Concomitant]
     Indication: DEPRESSION
     Dosage: DAILY
  4. RESTASIS [Concomitant]
     Indication: DRY EYE
  5. LATANOPROST [Concomitant]
     Indication: CATARACT
     Dosage: DAILY

REACTIONS (1)
  - Sinusitis [Recovering/Resolving]
